FAERS Safety Report 20335808 (Version 5)
Quarter: 2022Q2

REPORT INFORMATION
  Report Type: Report from Study
  Country: GR (occurrence: GR)
  Receive Date: 20220114
  Receipt Date: 20220526
  Transmission Date: 20220720
  Serious: Yes (Life-Threatening)
  Sender: FDA-Public Use
  Company Number: GR-GLAXOSMITHKLINE-GR2022GSK004621

PATIENT

DRUGS (19)
  1. BELANTAMAB MAFODOTIN [Suspect]
     Active Substance: BELANTAMAB MAFODOTIN
     Indication: Plasma cell myeloma
     Dosage: 2.5 MG/KG Q4W (DAY 1 OF 28 DAYS CYCLE) C1D1
     Route: 042
     Dates: start: 20211101, end: 20211101
  2. BELANTAMAB MAFODOTIN [Suspect]
     Active Substance: BELANTAMAB MAFODOTIN
     Dosage: 2.5 MG/KG Q4W (DAY 1 OF 28 DAYS CYCLE)C2D2
     Route: 042
     Dates: start: 20211129, end: 20211129
  3. BELANTAMAB MAFODOTIN [Suspect]
     Active Substance: BELANTAMAB MAFODOTIN
     Dosage: 2.5 2.5 MG/KG Q4W (DAY 1 OF 28 DAYS CYCLE)C3D3
     Route: 042
     Dates: start: 20211227
  4. POMALIDOMIDE [Suspect]
     Active Substance: POMALIDOMIDE
     Indication: Plasma cell myeloma
     Dosage: 4 MG DAYS 1-21 OD 28 DAYS CYCLE
     Route: 048
     Dates: start: 20211129, end: 20211220
  5. POMALIDOMIDE [Suspect]
     Active Substance: POMALIDOMIDE
     Dosage: UNK
     Route: 048
     Dates: start: 20220124
  6. DEXAMETHASONE [Suspect]
     Active Substance: DEXAMETHASONE
     Indication: Plasma cell myeloma
     Dosage: 40MG (DAYS 1, 8, 15 AND 22 OF 28 CYCLE)
     Route: 048
     Dates: start: 20211129
  7. POLYVINYL ALCOHOL\POVIDONE [Concomitant]
     Active Substance: POLYVINYL ALCOHOL\POVIDONE
     Indication: Dry eye
     Dosage: 2 DF (DROPS), Z (5 TIMES PER DAY)
     Dates: start: 20211007
  8. EXFORGE [Concomitant]
     Active Substance: AMLODIPINE BESYLATE\VALSARTAN
     Indication: Hypertension
     Dosage: 1 DF (TABLET), QD
     Route: 048
     Dates: start: 201001
  9. BARACLUDE [Concomitant]
     Active Substance: ENTECAVIR
     Indication: Prophylaxis
     Dosage: 0.5 MG, QD
     Route: 048
     Dates: start: 202101
  10. ASPIRIN [Concomitant]
     Active Substance: ASPIRIN
     Indication: Prophylaxis
     Dosage: 100 MG, QD
     Route: 048
     Dates: start: 20200731
  11. VALACYCLOVIR [Concomitant]
     Active Substance: VALACYCLOVIR HYDROCHLORIDE
     Indication: Antiviral prophylaxis
     Dosage: 500 MG, Z (Q12H)
     Route: 048
     Dates: start: 20200630
  12. OMEPRAZOLE [Concomitant]
     Active Substance: OMEPRAZOLE
     Indication: Prophylaxis
     Dosage: 1 DF (AMPUOLE), SINGLE
     Route: 042
     Dates: start: 20211129, end: 20211129
  13. OMEPRAZOLE [Concomitant]
     Active Substance: OMEPRAZOLE
     Dosage: 1 DF (AMPUOLE), SINGLE
     Route: 042
     Dates: start: 20211101, end: 20211101
  14. OMEPRAZOLE [Concomitant]
     Active Substance: OMEPRAZOLE
     Dosage: 1 DF (AMPUOLE), SINGLE
     Route: 042
     Dates: start: 20211227, end: 20211227
  15. ONDANSETRON [Concomitant]
     Active Substance: ONDANSETRON
     Indication: Prophylaxis
     Dosage: 1 DF (AMPOULE), SINGLE
     Route: 042
     Dates: start: 20211101, end: 20211101
  16. ACETAMINOPHEN [Concomitant]
     Active Substance: ACETAMINOPHEN
     Indication: Prophylaxis
     Dosage: 2 DF (TABLET), SINGLE
     Route: 048
     Dates: start: 20211101, end: 20211101
  17. LEVOCETIRIZINE [Concomitant]
     Active Substance: LEVOCETIRIZINE
     Indication: Prophylaxis
     Dosage: 1 DF (TABLET), SINGLE
     Route: 048
     Dates: start: 20211101, end: 20211101
  18. LIPITOR [Concomitant]
     Active Substance: ATORVASTATIN CALCIUM
     Indication: Hyperlipidaemia
     Dosage: 10 MG, QD
     Route: 048
     Dates: start: 2010
  19. BISOPROLOL FUMARATE [Concomitant]
     Active Substance: BISOPROLOL FUMARATE
     Indication: Arrhythmia
     Dosage: 2.5 MG, QD
     Route: 048
     Dates: start: 2010

REACTIONS (1)
  - Neutropenia [Recovered/Resolved]

NARRATIVE: CASE EVENT DATE: 20220110
